FAERS Safety Report 9646495 (Version 2)
Quarter: 2013Q4

REPORT INFORMATION
  Report Type: Report from Study
  Country: CA (occurrence: CA)
  Receive Date: 20131025
  Receipt Date: 20131111
  Transmission Date: 20140711
  Serious: Yes (Hospitalization)
  Sender: FDA-Public Use
  Company Number: CA-ABBVIE-13P-028-1159878-00

PATIENT
  Age: 41 Year
  Sex: Female
  Weight: 97 kg

DRUGS (1)
  1. HUMIRA [Suspect]
     Indication: CROHN^S DISEASE
     Route: 058
     Dates: start: 20130726, end: 20131004

REACTIONS (2)
  - Skin lesion [Unknown]
  - Staphylococcal infection [Recovering/Resolving]
